FAERS Safety Report 8517831-9 (Version None)
Quarter: 2012Q3

REPORT INFORMATION
  Report Type: 
  Country: None (occurrence: None)
  Receive Date: 20120712
  Receipt Date: 20120712
  Transmission Date: 20120928
  Serious: No
  Sender: FDA-Public Use
  Company Number: None

PATIENT
  Age: 36 Year
  Sex: Female
  Weight: 54.4316 kg

DRUGS (1)
  1. LO LOESTRIN FE [Suspect]
     Indication: RASH
     Dosage: 1MG/1MCG 1 PO
     Route: 048
     Dates: start: 20120709, end: 20120710

REACTIONS (1)
  - RASH [None]
